FAERS Safety Report 9127181 (Version 1)
Quarter: 2013Q1

REPORT INFORMATION
  Report Type: Spontaneous
  Country: US (occurrence: US)
  Receive Date: 20130228
  Receipt Date: 20130228
  Transmission Date: 20140127
  Serious: No
  Sender: FDA-Public Use
  Company Number: US-MYLANLABS-2012S1023927

PATIENT
  Age: 64 Year
  Sex: Male
  Weight: 79.38 kg

DRUGS (4)
  1. ATENOLOL TABLETS, USP [Suspect]
     Indication: BLOOD PRESSURE INCREASED
     Route: 048
  2. GABAPENTIN [Suspect]
     Indication: INSOMNIA
     Route: 048
     Dates: start: 2002, end: 2012
  3. GABAPENTIN [Suspect]
     Indication: RESTLESS LEGS SYNDROME
     Route: 048
     Dates: start: 2002, end: 2012
  4. ALLERGY MEDICATION [Concomitant]
     Indication: URTICARIA
     Dates: start: 2008

REACTIONS (3)
  - Drug effect decreased [Recovered/Resolved]
  - Blood pressure increased [Recovered/Resolved]
  - Libido decreased [Recovered/Resolved]
